FAERS Safety Report 4488283-3 (Version None)
Quarter: 2004Q4

REPORT INFORMATION
  Report Type: 
  Country: None (occurrence: None)
  Receive Date: 20041026
  Receipt Date: 20041018
  Transmission Date: 20050328
  Serious: Yes (Hospitalization, Other)
  Sender: FDA-Public Use
  Company Number: S04-USA-06149-01

PATIENT
  Age: 59 Year
  Sex: Female

DRUGS (5)
  1. LEVOTHROID [Suspect]
     Indication: HYPOTHYROIDISM
     Dosage: 0.05 MG QD PO
     Route: 048
     Dates: start: 20040601, end: 20040101
  2. LEVOTHROID [Suspect]
     Indication: HYPOTHYROIDISM
     Dosage: 0.05 MQ QD PO
     Route: 048
     Dates: start: 19900101, end: 20040601
  3. LEVOTHROID [Suspect]
     Indication: HYPOTHYROIDISM
     Dosage: 0.025 MG QD PO
     Route: 048
     Dates: start: 20040101
  4. CALTRATE          (CALCIUM CARBONATE) [Concomitant]
  5. ESTRADIOL [Concomitant]

REACTIONS (6)
  - DRUG INEFFECTIVE [None]
  - EXTRASYSTOLES [None]
  - FEELING ABNORMAL [None]
  - HYPERSENSITIVITY [None]
  - MYALGIA [None]
  - TACHYCARDIA [None]
